FAERS Safety Report 19006165 (Version 1)
Quarter: 2021Q1

REPORT INFORMATION
  Report Type: Spontaneous
  Country: US (occurrence: US)
  Receive Date: 20210315
  Receipt Date: 20210315
  Transmission Date: 20210420
  Serious: No
  Sender: FDA-Public Use
  Company Number: US-SA-2021SA083016

PATIENT
  Age: 58 Year
  Sex: Female

DRUGS (2)
  1. CAMPATH [Suspect]
     Active Substance: ALEMTUZUMAB
     Dosage: UNK
     Dates: start: 20160418, end: 20160422
  2. CAMPATH [Suspect]
     Active Substance: ALEMTUZUMAB
     Dosage: UNK
     Dates: start: 20170410, end: 20170412

REACTIONS (2)
  - Nodule [Unknown]
  - Swelling [Unknown]

NARRATIVE: CASE EVENT DATE: 202103
